FAERS Safety Report 16953254 (Version 4)
Quarter: 2020Q1

REPORT INFORMATION
  Report Type: Spontaneous
  Country: JP (occurrence: JP)
  Receive Date: 20191023
  Receipt Date: 20200311
  Transmission Date: 20200409
  Serious: Yes (Death, Hospitalization, Other)
  Sender: FDA-Public Use
  Company Number: JP-PFIZER INC-2019458873

PATIENT
  Age: 81 Year
  Sex: Male
  Weight: 68.3 kg

DRUGS (9)
  1. DOCETAXEL 120MG/12ML HOSPIRA [Suspect]
     Active Substance: DOCETAXEL
     Dosage: 100.1 MG, 1X/DAY
     Route: 041
     Dates: start: 20170316
  2. PROSTAL [CHLORMADINONE ACETATE] [Concomitant]
     Indication: BENIGN PROSTATIC HYPERPLASIA
     Dosage: 25 MG, 2X/DAY
     Route: 048
  3. LAC-B [Concomitant]
     Active Substance: BIFIDOBACTERIUM SPP.
     Dosage: 1 TABLET, 3X/DAY
     Route: 048
  4. DOCETAXEL 120MG/12ML HOSPIRA [Suspect]
     Active Substance: DOCETAXEL
     Indication: PROSTATE CANCER
     Dosage: 125.6 MG, 1X/DAY
     Route: 041
     Dates: start: 20170216
  5. ALLOPURINOL. [Concomitant]
     Active Substance: ALLOPURINOL
     Indication: HYPERURICAEMIA
     Dosage: 100 MG, 1X/DAY
     Route: 048
  6. PREDNISOLONE. [Suspect]
     Active Substance: PREDNISOLONE
     Indication: PROSTATE CANCER
     Dosage: 5 MG, 2X/DAY
     Route: 048
  7. URIEF [Concomitant]
     Active Substance: SILODOSIN
     Indication: BENIGN PROSTATIC HYPERPLASIA
     Dosage: 4 MG, 2X/DAY
  8. LANIRAPID [Concomitant]
     Active Substance: METILDIGOXIN
     Indication: ATRIAL FIBRILLATION
     Dosage: 0.1 MG, 1X/DAY
     Route: 048
  9. WARFARIN [Concomitant]
     Active Substance: WARFARIN
     Indication: ATRIAL FIBRILLATION
     Dosage: 2 MG, 1X/DAY
     Route: 048

REACTIONS (4)
  - Neoplasm progression [Fatal]
  - Interstitial lung disease [Recovering/Resolving]
  - Pancytopenia [Unknown]
  - Hyponatraemia [Unknown]

NARRATIVE: CASE EVENT DATE: 20170329
